FAERS Safety Report 8129900-6 (Version None)
Quarter: 2012Q1

REPORT INFORMATION
  Report Type: 
  Country: None (occurrence: None)
  Receive Date: 20120210
  Receipt Date: 20120131
  Transmission Date: 20120608
  Serious: Yes (Other)
  Sender: FDA-Public Use
  Company Number: RU-ROCHE-622280

PATIENT
  Age: 48 Year
  Sex: Female

DRUGS (3)
  1. CHONDROITIN SULFATE/GLUCOSAMINE [Concomitant]
     Dosage: REPORTED DRUG: CHONDROITIN SULFATE/GLUCOSAMINE SULFATE/THERAFLEX.
  2. CHONDROITIN SULFATE/GLUCOSAMINE [Concomitant]
     Indication: OSTEOARTHRITIS
  3. XENICAL [Suspect]
     Indication: OVERWEIGHT
     Route: 048
     Dates: start: 20090301, end: 20090315

REACTIONS (10)
  - THYROID DISORDER [None]
  - HEPATOMEGALY [None]
  - PANCREATIC DISORDER [None]
  - TONSILLITIS [None]
  - RECTAL HAEMORRHAGE [None]
  - GASTROINTESTINAL DISORDER [None]
  - CONSTIPATION [None]
  - GASTROINTESTINAL HYPOMOTILITY [None]
  - LIVER DISORDER [None]
  - GASTROINTESTINAL NEOPLASM [None]
